FAERS Safety Report 5888274-1 (Version None)
Quarter: 2008Q3

REPORT INFORMATION
  Report Type: 
  Country: None (occurrence: None)
  Receive Date: 20080916
  Receipt Date: 20080916
  Transmission Date: 20090109
  Serious: Yes (Life-Threatening, Hospitalization)
  Sender: FDA-Public Use
  Company Number: None

PATIENT
  Age: 52 Year
  Sex: Female
  Weight: 79.3795 kg

DRUGS (1)
  1. LAMICTAL [Suspect]
     Dosage: 25MG TWO TIMES DAILY PO
     Route: 048
     Dates: start: 20030914, end: 20030917

REACTIONS (2)
  - BURNS FIRST DEGREE [None]
  - TOXIC EPIDERMAL NECROLYSIS [None]
